FAERS Safety Report 5835459-6 (Version None)
Quarter: 2008Q3

REPORT INFORMATION
  Report Type: 
  Country: None (occurrence: None)
  Receive Date: 20080806
  Receipt Date: 20080801
  Transmission Date: 20090109
  Serious: Yes (Hospitalization)
  Sender: FDA-Public Use
  Company Number: US-WATSON-2008-04512

PATIENT
  Sex: Male
  Weight: 68.9 kg

DRUGS (10)
  1. TRELSTAR DEPOT [Suspect]
     Indication: PROSTATE CANCER
     Dosage: UNK
     Route: 030
     Dates: start: 20080101
  2. IRON ^SLOW IRON^ [Concomitant]
     Indication: SUPPLEMENTATION THERAPY
     Dosage: 1 TABLET,  QOD
     Route: 048
     Dates: end: 20080721
  3. ASPIRIN [Concomitant]
     Indication: DRUG USE FOR UNKNOWN INDICATION
     Dosage: 81 MG, DAILY
     Route: 048
     Dates: end: 20080721
  4. CASODEX [Concomitant]
     Indication: PROSTATE CANCER
     Dosage: 50 MG, DAILY
     Route: 048
  5. LIPITOR [Concomitant]
     Indication: BLOOD CHOLESTEROL
     Dosage: 10 MG, DAILY
     Route: 048
  6. PLAVIX [Concomitant]
     Indication: DRUG USE FOR UNKNOWN INDICATION
     Dosage: 75 MG, DAILY
     Route: 048
     Dates: end: 20080721
  7. ALTACE [Concomitant]
     Indication: DRUG USE FOR UNKNOWN INDICATION
     Dosage: 5 MG, DAILY
     Route: 048
  8. TOPROL-XL [Concomitant]
     Indication: HYPERTENSION
     Dosage: 25 MG, DAILY
     Route: 048
  9. VITAMIN E                          /00110501/ [Concomitant]
     Indication: SUPPLEMENTATION THERAPY
     Dosage: 400 U, DAILY
     Route: 048
  10. MULTI-VITAMINS [Concomitant]
     Indication: SUPPLEMENTATION THERAPY
     Dosage: 1 TABLET, DAILY
     Route: 048

REACTIONS (7)
  - ANAEMIA HAEMOLYTIC AUTOIMMUNE [None]
  - BONE MARROW FAILURE [None]
  - DYSPNOEA [None]
  - FATIGUE [None]
  - MYELODYSPLASTIC SYNDROME [None]
  - ORTHOSTATIC HYPOTENSION [None]
  - PALPITATIONS [None]
